FAERS Safety Report 9104852 (Version 1)
Quarter: 2013Q1

REPORT INFORMATION
  Report Type: Spontaneous
  Country: US (occurrence: US)
  Receive Date: 20130219
  Receipt Date: 20130219
  Transmission Date: 20140127
  Serious: Yes (Other)
  Sender: FDA-Public Use
  Company Number: US-AMGEN-USASP2013009883

PATIENT
  Age: 44 Year
  Sex: Male

DRUGS (11)
  1. ENBREL [Suspect]
     Indication: PSORIASIS
     Dosage: UNK
     Dates: start: 2004, end: 2008
  2. HUMIRA [Suspect]
     Indication: PSORIATIC ARTHROPATHY
     Dosage: UNK
     Route: 058
     Dates: start: 20120515, end: 20120703
  3. HUMIRA [Suspect]
     Indication: PSORIASIS
     Dosage: UNK
     Route: 058
     Dates: start: 20120710, end: 20130115
  4. REMICADE [Suspect]
     Indication: PSORIATIC ARTHROPATHY
     Dosage: UNK
     Dates: start: 2008, end: 20120428
  5. REMICADE [Suspect]
     Indication: PSORIASIS
  6. RAPTIVA [Suspect]
     Indication: PSORIASIS
     Dosage: UNK
     Dates: start: 2002, end: 2004
  7. SINGULAIR [Concomitant]
     Indication: ASTHMA
     Dosage: UNK
  8. PREVACID [Concomitant]
     Indication: GASTROOESOPHAGEAL REFLUX DISEASE
     Dosage: UNK
  9. WELLBUTRIN [Concomitant]
     Indication: DEPRESSION
     Dosage: UNK
  10. ZOLOFT [Concomitant]
     Indication: ANXIETY
     Dosage: UNK
  11. KLONOPIN [Concomitant]
     Indication: IRRITABILITY
     Dosage: UNK

REACTIONS (8)
  - Primary amyloidosis [Unknown]
  - Skin lesion [Unknown]
  - Skin haemorrhage [Unknown]
  - Secondary amyloidosis [Unknown]
  - Pruritus [Unknown]
  - Pain of skin [Unknown]
  - Psoriatic arthropathy [Unknown]
  - Drug effect decreased [Unknown]
